FAERS Safety Report 19356407 (Version 1)
Quarter: 2021Q2

REPORT INFORMATION
  Report Type: Report from Study
  Country: US (occurrence: US)
  Receive Date: 20210601
  Receipt Date: 20210601
  Transmission Date: 20210717
  Serious: Yes (Life-Threatening)
  Sender: FDA-Public Use
  Company Number: US-AUROBINDO-AUR-APL-2021-021321

PATIENT
  Age: 47 Year

DRUGS (5)
  1. ABACAVIR/LAMIVUDIN [Suspect]
     Active Substance: ABACAVIR\LAMIVUDINE
     Indication: CHRONIC HEPATITIS C
     Dosage: UNK
     Route: 065
  2. RIBAVIRIN. [Suspect]
     Active Substance: RIBAVIRIN
     Indication: CHRONIC HEPATITIS C
     Dosage: UNK
     Route: 065
  3. RALTEGRAVIR. [Suspect]
     Active Substance: RALTEGRAVIR
     Indication: CHRONIC HEPATITIS C
     Dosage: UNK
     Route: 065
  4. ATAZANAVIR. [Suspect]
     Active Substance: ATAZANAVIR
     Indication: CHRONIC HEPATITIS C
     Dosage: UNK
     Route: 065
  5. TELAPREVIR [Concomitant]
     Active Substance: TELAPREVIR
     Indication: HIV INFECTION
     Dosage: 2250 MILLIGRAM, ONCE A DAY
     Route: 048

REACTIONS (1)
  - Anaemia [Unknown]
